FAERS Safety Report 7746253-3 (Version None)
Quarter: 2011Q3

REPORT INFORMATION
  Report Type: 
  Country: None (occurrence: None)
  Receive Date: 20110913
  Receipt Date: 20110829
  Transmission Date: 20111222
  Serious: Yes (Other)
  Sender: FDA-Public Use
  Company Number: US-ROCHE-799777

PATIENT
  Sex: Female

DRUGS (3)
  1. PACLITAXEL [Suspect]
     Dosage: OTHER: INFUSION. WAS NOT GIVEN ON WEEK 4
     Route: 042
  2. TRASTUZUMAB [Suspect]
     Route: 042
  3. TRASTUZUMAB [Suspect]
     Indication: BREAST CANCER METASTATIC
     Dosage: FORM: INFUSION
     Route: 042

REACTIONS (21)
  - NAIL DISORDER [None]
  - LEUKOPENIA [None]
  - CARDIAC DISORDER [None]
  - OEDEMA [None]
  - ARRHYTHMIA [None]
  - ANAEMIA [None]
  - CEREBRAL ISCHAEMIA [None]
  - NAUSEA [None]
  - VOMITING [None]
  - SKIN EXFOLIATION [None]
  - PERIPHERAL SENSORY NEUROPATHY [None]
  - INFECTION [None]
  - MUSCULAR WEAKNESS [None]
  - PAIN [None]
  - DYSPNOEA [None]
  - NEUTROPENIA [None]
  - COLITIS [None]
  - FATIGUE [None]
  - CONSTIPATION [None]
  - DIASTOLIC DYSFUNCTION [None]
  - PYREXIA [None]
